FAERS Safety Report 17210441 (Version 3)
Quarter: 2020Q1

REPORT INFORMATION
  Report Type: Spontaneous
  Country: US (occurrence: US)
  Receive Date: 20191227
  Receipt Date: 20200113
  Transmission Date: 20200409
  Serious: Yes (Life-Threatening)
  Sender: FDA-Public Use
  Company Number: US-LEO PHARMA-327226

PATIENT
  Age: 75 Year
  Sex: Female

DRUGS (4)
  1. VERAPAMIL [Concomitant]
     Active Substance: VERAPAMIL HYDROCHLORIDE
     Indication: BLOOD PRESSURE MEASUREMENT
  2. NEURONTIN [Concomitant]
     Active Substance: GABAPENTIN
     Indication: NERVE COMPRESSION
  3. LISINOPRIL HCTZ [Concomitant]
     Active Substance: HYDROCHLOROTHIAZIDE\LISINOPRIL
     Indication: BLOOD PRESSURE MEASUREMENT
     Dosage: 20/25 MG, DAILY
  4. DAIVONEX [Suspect]
     Active Substance: CALCIPOTRIENE
     Indication: PSORIASIS
     Dosage: APPLY TO THE LEGS, BACK, ARMS AND NECK ON WEEKENDS
     Route: 061
     Dates: start: 20191221, end: 20191222

REACTIONS (4)
  - Dysphonia [Not Recovered/Not Resolved]
  - Swelling face [Recovering/Resolving]
  - Throat tightness [Not Recovered/Not Resolved]
  - Dyspnoea [Recovering/Resolving]

NARRATIVE: CASE EVENT DATE: 20191221
